FAERS Safety Report 4899952-5 (Version None)
Quarter: 2006Q1

REPORT INFORMATION
  Report Type: 
  Country: None (occurrence: None)
  Receive Date: 20060201
  Receipt Date: 20060112
  Transmission Date: 20060701
  Serious: Yes (Other)
  Sender: FDA-Public Use
  Company Number: US200601002266

PATIENT
  Age: 74 Year
  Sex: Female

DRUGS (1)
  1. EVISTA [Suspect]
     Indication: OSTEOPOROSIS
     Dosage: DAILY (1/D), ORAL
     Route: 048
     Dates: start: 20020601, end: 20030601

REACTIONS (3)
  - BONE DENSITY DECREASED [None]
  - BREAST CANCER [None]
  - DRUG INEFFECTIVE [None]
